FAERS Safety Report 15621079 (Version 1)
Quarter: 2018Q4

REPORT INFORMATION
  Report Type: Spontaneous
  Country: US (occurrence: US)
  Receive Date: 20181115
  Receipt Date: 20181115
  Transmission Date: 20190205
  Serious: No
  Sender: FDA-Public Use
  Company Number: US-EISAI MEDICAL RESEARCH-EC-2018-047474

PATIENT
  Sex: Female

DRUGS (1)
  1. LENVIMA [Suspect]
     Active Substance: LENVATINIB
     Indication: HEPATOCELLULAR CARCINOMA
     Route: 048
     Dates: start: 2018, end: 201811

REACTIONS (1)
  - Palmar-plantar erythrodysaesthesia syndrome [Recovered/Resolved]

NARRATIVE: CASE EVENT DATE: 201811
